FAERS Safety Report 4931083-8 (Version None)
Quarter: 2006Q1

REPORT INFORMATION
  Report Type: 
  Country: None (occurrence: None)
  Receive Date: 20060302
  Receipt Date: 20050929
  Transmission Date: 20060701
  Serious: Yes (Hospitalization, Disabling)
  Sender: FDA-Public Use
  Company Number: US-MERCK-0510USA00526

PATIENT
  Age: 37 Year
  Sex: Male
  Weight: 159 kg

DRUGS (11)
  1. VIOXX [Suspect]
     Indication: BACK INJURY
     Route: 048
     Dates: start: 20001220, end: 20031214
  2. GLUCOPHAGE [Concomitant]
     Route: 065
  3. ZOCOR [Concomitant]
     Route: 065
  4. ISOSORBIDE [Concomitant]
     Route: 065
  5. METOPROLOL [Concomitant]
     Route: 065
  6. OXYCONTIN [Concomitant]
     Route: 065
  7. HYDROCODONE BITARTRATE + ACETAMINOPHEN [Concomitant]
     Route: 065
  8. LOTENSIN [Concomitant]
     Route: 065
  9. DICYCLOMINE HYDROCHLORIDE [Concomitant]
     Route: 065
  10. GLYBURIDE [Concomitant]
     Route: 065
  11. PRILOSEC [Concomitant]
     Route: 065

REACTIONS (2)
  - CARDIAC DISORDER [None]
  - MYOCARDIAL INFARCTION [None]
